FAERS Safety Report 16324952 (Version 2)
Quarter: 2019Q2

REPORT INFORMATION
  Report Type: Spontaneous
  Country: US (occurrence: US)
  Receive Date: 20190517
  Receipt Date: 20190627
  Transmission Date: 20190711
  Serious: No
  Sender: FDA-Public Use
  Company Number: US-BAUSCH-BL-2019-013300

PATIENT
  Sex: Male

DRUGS (1)
  1. LOTEMAX [Suspect]
     Active Substance: LOTEPREDNOL ETABONATE
     Indication: CORNEAL OEDEMA
     Dosage: STARTED LOTEMAX ABOUT 1.5 MONTHS AGO: ONE DROP IN LEFT EYE
     Route: 047
     Dates: start: 2019, end: 2019

REACTIONS (2)
  - Drug ineffective [Unknown]
  - Inappropriate schedule of product administration [Unknown]

NARRATIVE: CASE EVENT DATE: 2019
